FAERS Safety Report 20822194 (Version 1)
Quarter: 2022Q2

REPORT INFORMATION
  Report Type: Spontaneous
  Country: US (occurrence: US)
  Receive Date: 20220512
  Receipt Date: 20220512
  Transmission Date: 20220721
  Serious: No
  Sender: FDA-Public Use
  Company Number: US-PFIZER INC-202200506378

PATIENT
  Age: 69 Year
  Sex: Female

DRUGS (1)
  1. XELJANZ XR [Suspect]
     Active Substance: TOFACITINIB CITRATE
     Indication: Rheumatoid arthritis
     Dosage: 11 MG, 1X/DAY (ONCE DAILY)
     Dates: start: 20161101

REACTIONS (6)
  - Therapeutic product effect incomplete [Unknown]
  - Joint stiffness [Unknown]
  - Pain in extremity [Unknown]
  - Joint swelling [Unknown]
  - Joint swelling [Unknown]
  - Condition aggravated [Unknown]
